FAERS Safety Report 25952705 (Version 1)
Quarter: 2025Q4

REPORT INFORMATION
  Report Type: Spontaneous
  Country: US (occurrence: US)
  Receive Date: 20251023
  Receipt Date: 20251023
  Transmission Date: 20260118
  Serious: Yes (Death, Other)
  Sender: INCYTE
  Company Number: US-INCYTE CORPORATION-2025IN011665

PATIENT
  Age: 87 Year

DRUGS (1)
  1. JAKAFI [Suspect]
     Active Substance: RUXOLITINIB
     Indication: Nephrogenic anaemia
     Dosage: 5 MILLIGRAM, BID

REACTIONS (3)
  - Mesothelioma [Fatal]
  - Lung neoplasm malignant [Fatal]
  - Off label use [Unknown]
